FAERS Safety Report 13645273 (Version 1)
Quarter: 2017Q2

REPORT INFORMATION
  Report Type: Spontaneous
  Country: US (occurrence: US)
  Receive Date: 20170612
  Receipt Date: 20170612
  Transmission Date: 20170830
  Serious: No
  Sender: FDA-Public Use
  Company Number: US-ROCHE-1254509

PATIENT
  Sex: Female

DRUGS (1)
  1. CAPECITABINE. [Suspect]
     Active Substance: CAPECITABINE
     Indication: NEOPLASM MALIGNANT
     Dosage: TAKE DAY 1-14, OFF FOR 7 DAYS
     Route: 048

REACTIONS (4)
  - Therapy cessation [Unknown]
  - Drug intolerance [Unknown]
  - Treatment noncompliance [Unknown]
  - Malaise [Unknown]
